FAERS Safety Report 6287416-6 (Version None)
Quarter: 2009Q3

REPORT INFORMATION
  Report Type: 
  Country: None (occurrence: None)
  Receive Date: 20090728
  Receipt Date: 20090718
  Transmission Date: 20100115
  Serious: Yes (Hospitalization)
  Sender: FDA-Public Use
  Company Number: US-ABBOTT-09P-163-0586129-00

PATIENT
  Sex: Female

DRUGS (5)
  1. NIASPAN [Suspect]
     Indication: BLOOD CHOLESTEROL INCREASED
     Dates: start: 20070626, end: 20070627
  2. FLEXERIL [Concomitant]
     Indication: DRUG USE FOR UNKNOWN INDICATION
  3. ONE-A-DAY WOMEN'S [Concomitant]
     Indication: DRUG USE FOR UNKNOWN INDICATION
  4. PRAVASTATIN [Concomitant]
     Indication: DRUG USE FOR UNKNOWN INDICATION
  5. ASPIRIN [Concomitant]
     Indication: DRUG USE FOR UNKNOWN INDICATION

REACTIONS (3)
  - BLOOD PRESSURE IMMEASURABLE [None]
  - ERYTHEMA [None]
  - LOSS OF CONSCIOUSNESS [None]
